FAERS Safety Report 6709186-7 (Version None)
Quarter: 2010Q2

REPORT INFORMATION
  Report Type: 
  Country: None (occurrence: None)
  Receive Date: 20100423
  Receipt Date: 20091123
  Transmission Date: 20101027
  Serious: No
  Sender: FDA-Public Use
  Company Number: ALL1-2009-03828

PATIENT
  Age: 52 Year
  Sex: Female
  Weight: 54.4 kg

DRUGS (4)
  1. VYVANSE [Suspect]
     Indication: DRUG USE FOR UNKNOWN INDICATION
     Dosage: 40 MG, 1X/DAY:QD, ORAL ; 70 MG, 1X/DAY:QD, ORAL
     Route: 048
     Dates: start: 20090901, end: 20091001
  2. VYVANSE [Suspect]
     Indication: DRUG USE FOR UNKNOWN INDICATION
     Dosage: 40 MG, 1X/DAY:QD, ORAL ; 70 MG, 1X/DAY:QD, ORAL
     Route: 048
     Dates: start: 20091001
  3. CELEXA [Concomitant]
  4. EFFEXOR [Concomitant]

REACTIONS (4)
  - CONDITION AGGRAVATED [None]
  - FRUSTRATION [None]
  - HYPERMETROPIA [None]
  - MYOPIA [None]
